FAERS Safety Report 8853891 (Version 2)
Quarter: 2013Q1

REPORT INFORMATION
  Report Type: Spontaneous
  Country: DE (occurrence: DE)
  Receive Date: 20121022
  Receipt Date: 20130111
  Transmission Date: 20140127
  Serious: Yes (Life-Threatening, Hospitalization, Other)
  Sender: FDA-Public Use
  Company Number: PHHY2012DE093148

PATIENT
  Age: 54 Year
  Sex: Male
  Weight: 81.2 kg

DRUGS (8)
  1. LEPONEX [Suspect]
     Indication: SCHIZOPHRENIA
     Dosage: 300 MG, QD
     Route: 048
  2. LEPONEX [Suspect]
     Dosage: 170 MG, QD
     Route: 048
     Dates: start: 201209
  3. LEPONEX [Suspect]
     Dosage: 12.5 MG QD WITH STEPWISE INCREASE.
  4. LEPONEX [Suspect]
     Dosage: UNK 175-200 MG
     Route: 048
  5. VALPROATE [Concomitant]
     Indication: SCHIZOAFFECTIVE DISORDER
     Dosage: 1200 MG, QD
     Route: 048
     Dates: start: 2010
  6. ARIPIPRAZOLE [Concomitant]
     Indication: SCHIZOAFFECTIVE DISORDER
     Dosage: 15 MG, QD
     Route: 048
     Dates: start: 2010
  7. PANTOPRAZOLE [Concomitant]
     Dosage: 80 MG, QD
     Route: 048
     Dates: start: 2010
  8. ASS [Concomitant]
     Indication: ATRIAL SEPTAL DEFECT
     Dosage: 100 MG, QD
     Route: 048
     Dates: start: 2010

REACTIONS (8)
  - Renal failure acute [Recovered/Resolved]
  - Colitis [Recovering/Resolving]
  - C-reactive protein increased [Recovering/Resolving]
  - Gastroenteritis [Recovering/Resolving]
  - Pyrexia [Recovering/Resolving]
  - Pleural effusion [Recovering/Resolving]
  - Ischaemia [Unknown]
  - Pericardial effusion [Recovered/Resolved]
